FAERS Safety Report 4740317-4 (Version None)
Quarter: 2005Q3

REPORT INFORMATION
  Report Type: 
  Country: None (occurrence: None)
  Receive Date: 20050729
  Receipt Date: 20050502
  Transmission Date: 20060218
  Serious: Yes (Hospitalization)
  Sender: FDA-Public Use
  Company Number: RB-1586-2005

PATIENT
  Age: 36 Year
  Sex: Male
  Weight: 69.8539 kg

DRUGS (3)
  1. SUBOXONE [Suspect]
     Indication: DRUG DEPENDENCE
     Dosage: 8 MG BID SL
     Route: 060
     Dates: start: 20050126, end: 20050422
  2. LAMISIL [Concomitant]
  3. REMERON [Concomitant]

REACTIONS (1)
  - LIVER FUNCTION TEST ABNORMAL [None]
